FAERS Safety Report 9105858 (Version 1)
Quarter: 2013Q1

REPORT INFORMATION
  Report Type: Spontaneous
  Country: FR (occurrence: FR)
  Receive Date: 20130220
  Receipt Date: 20130220
  Transmission Date: 20140127
  Serious: Yes (Life-Threatening)
  Sender: FDA-Public Use
  Company Number: FR-JNJFOC-20130203311

PATIENT
  Age: 66 Year
  Sex: Female

DRUGS (13)
  1. RISPERDAL [Suspect]
     Indication: PRODUCT USED FOR UNKNOWN INDICATION
     Dosage: LONG TERM THERAPY
     Route: 048
     Dates: end: 20121227
  2. RISPERDAL [Suspect]
     Indication: PRODUCT USED FOR UNKNOWN INDICATION
     Route: 048
     Dates: start: 20130104
  3. ANAFRANIL [Suspect]
     Indication: PRODUCT USED FOR UNKNOWN INDICATION
     Route: 042
     Dates: start: 20130104
  4. ANAFRANIL [Suspect]
     Indication: PRODUCT USED FOR UNKNOWN INDICATION
     Route: 042
     Dates: start: 20121223, end: 20121226
  5. DEPAKINE CHRONO [Suspect]
     Indication: PRODUCT USED FOR UNKNOWN INDICATION
     Route: 048
  6. DEPAKINE CHRONO [Suspect]
     Indication: PRODUCT USED FOR UNKNOWN INDICATION
     Route: 048
     Dates: start: 2010
  7. MYSOLINE [Suspect]
     Indication: PRODUCT USED FOR UNKNOWN INDICATION
     Route: 048
     Dates: start: 201007
  8. SERESTA [Suspect]
     Indication: PRODUCT USED FOR UNKNOWN INDICATION
     Dosage: LONG TERM THERAPY
     Route: 048
  9. AMLOR [Suspect]
     Indication: PRODUCT USED FOR UNKNOWN INDICATION
     Dosage: LONG TERM THERAPY
     Route: 048
     Dates: end: 20121226
  10. LOSARTAN POTASSIUM [Suspect]
     Indication: PRODUCT USED FOR UNKNOWN INDICATION
     Dosage: LONG TERM THERAPY
     Route: 048
  11. ATENOLOL [Suspect]
     Indication: PRODUCT USED FOR UNKNOWN INDICATION
     Dosage: LONG TERM THERAPY
     Route: 048
  12. LEVOTHYROX [Suspect]
     Indication: PRODUCT USED FOR UNKNOWN INDICATION
     Dosage: LONG TERM THERAPY
     Route: 048
  13. KARDEGIC [Suspect]
     Indication: PRODUCT USED FOR UNKNOWN INDICATION
     Dosage: LONG TERM THERAPY
     Route: 048

REACTIONS (1)
  - Posterior reversible encephalopathy syndrome [Recovering/Resolving]
